FAERS Safety Report 4789319-2 (Version None)
Quarter: 2005Q3

REPORT INFORMATION
  Report Type: 
  Country: None (occurrence: None)
  Receive Date: 20050929
  Receipt Date: 20050808
  Transmission Date: 20060218
  Serious: No
  Sender: FDA-Public Use
  Company Number: 05P-163-0307718-0.

PATIENT
  Age: 57 Year
  Sex: Female
  Weight: 47.1741 kg

DRUGS (3)
  1. HUMIRA [Suspect]
     Indication: RHEUMATOID ARTHRITIS
     Dosage: 40 MG, 1 IN 2 WK, SUBCUTANEOUS
     Route: 058
     Dates: start: 20050804
  2. FOLIC ACID [Concomitant]
  3. MULTI-VITAMINS [Concomitant]

REACTIONS (1)
  - INJECTION SITE IRRITATION [None]
